FAERS Safety Report 9440295 (Version 2)
Quarter: 2013Q3

REPORT INFORMATION
  Report Type: Spontaneous
  Country: US (occurrence: US)
  Receive Date: 20130805
  Receipt Date: 20130927
  Transmission Date: 20140515
  Serious: Yes (Life-Threatening, Hospitalization, Disabling)
  Sender: FDA-Public Use
  Company Number: US-JNJFOC-20130800682

PATIENT
  Age: 58 Year
  Sex: Female
  Weight: 110.8 kg

DRUGS (7)
  1. XARELTO [Suspect]
     Indication: CEREBROVASCULAR ACCIDENT PROPHYLAXIS
     Route: 048
  2. XARELTO [Suspect]
     Indication: ATRIAL FIBRILLATION
     Route: 048
  3. AMLODIPINE [Concomitant]
     Indication: HYPERTENSION
     Route: 065
  4. ATORVASTATIN [Concomitant]
     Indication: BLOOD CHOLESTEROL
     Route: 065
  5. METOPROLOL [Concomitant]
     Indication: ATRIAL FIBRILLATION
     Route: 065
  6. FAMOTIDINE [Concomitant]
     Indication: GASTROINTESTINAL DISORDER THERAPY
     Route: 065
  7. FAMOTIDINE [Concomitant]
     Indication: DYSPEPSIA
     Route: 065

REACTIONS (2)
  - Carotid artery occlusion [Unknown]
  - Ischaemic stroke [Recovered/Resolved with Sequelae]
